FAERS Safety Report 21074842 (Version 3)
Quarter: 2022Q3

REPORT INFORMATION
  Report Type: Spontaneous
  Country: FR (occurrence: FR)
  Receive Date: 20220713
  Receipt Date: 20220803
  Transmission Date: 20221027
  Serious: Yes (Hospitalization, Other)
  Sender: FDA-Public Use
  Company Number: FR-SA-SAC20220712000806

PATIENT
  Age: 52 Year
  Sex: Male

DRUGS (1)
  1. CEREZYME [Suspect]
     Active Substance: IMIGLUCERASE
     Dosage: 7200 U, QOW
     Route: 065

REACTIONS (2)
  - Suicide attempt [Unknown]
  - Fall [Unknown]

NARRATIVE: CASE EVENT DATE: 20220512
